FAERS Safety Report 11045468 (Version 4)
Quarter: 2016Q4

REPORT INFORMATION
  Report Type: Spontaneous
  Country: US (occurrence: US)
  Receive Date: 20150417
  Receipt Date: 20161123
  Transmission Date: 20170206
  Serious: Yes (Disabling, Other)
  Sender: FDA-Public Use
  Company Number: US-009507513-1504USA015663

PATIENT
  Sex: Male

DRUGS (3)
  1. PROPECIA [Suspect]
     Active Substance: FINASTERIDE
     Indication: ALOPECIA
     Dosage: 1 MG, QD
     Route: 048
     Dates: start: 1996, end: 2012
  2. PROPECIA [Suspect]
     Active Substance: FINASTERIDE
     Dosage: 10 MG, QD
     Route: 048
     Dates: start: 1996, end: 1997
  3. TRAZODONE HYDROCHLORIDE. [Concomitant]
     Active Substance: TRAZODONE HYDROCHLORIDE
     Indication: SLEEP DISORDER
     Dosage: UNK
     Dates: start: 1986

REACTIONS (24)
  - Overdose [Unknown]
  - Haemorrhoids [Unknown]
  - Sleep disorder [Not Recovered/Not Resolved]
  - Sexual dysfunction [Not Recovered/Not Resolved]
  - Blood testosterone decreased [Not Recovered/Not Resolved]
  - Erectile dysfunction [Not Recovered/Not Resolved]
  - Hypothalamo-pituitary disorder [Unknown]
  - Schizophrenia [Not Recovered/Not Resolved]
  - Emotional distress [Not Recovered/Not Resolved]
  - Libido decreased [Not Recovered/Not Resolved]
  - Diarrhoea [Unknown]
  - Post viral fatigue syndrome [Not Recovered/Not Resolved]
  - Anxiety [Not Recovered/Not Resolved]
  - Back pain [Unknown]
  - Antinuclear antibody positive [Unknown]
  - Alopecia [Not Recovered/Not Resolved]
  - Neck pain [Unknown]
  - Depression [Not Recovered/Not Resolved]
  - Growth hormone deficiency [Unknown]
  - Cyst [Unknown]
  - Irritable bowel syndrome [Unknown]
  - Asthenia [Not Recovered/Not Resolved]
  - Blood cortisol decreased [Unknown]
  - Dyspepsia [Unknown]

NARRATIVE: CASE EVENT DATE: 1996
